FAERS Safety Report 12346829 (Version 1)
Quarter: 2016Q2

REPORT INFORMATION
  Report Type: Report from Study
  Country: US (occurrence: US)
  Receive Date: 20160509
  Receipt Date: 20160509
  Transmission Date: 20160815
  Serious: No
  Sender: FDA-Public Use
  Company Number: PHEH2015US006573

PATIENT
  Age: 86 Year
  Sex: Female

DRUGS (1)
  1. GLEEVEC [Suspect]
     Active Substance: IMATINIB MESYLATE
     Indication: PRODUCT USED FOR UNKNOWN INDICATION
     Dosage: 100 MG, 2 TABLETS Q12H
     Route: 048

REACTIONS (6)
  - Rash [Unknown]
  - Urticaria [Unknown]
  - Skin exfoliation [Unknown]
  - Swelling [Unknown]
  - Oedema [Unknown]
  - Blister [Unknown]

NARRATIVE: CASE EVENT DATE: 20150318
